FAERS Safety Report 25931542 (Version 1)
Quarter: 2025Q4

REPORT INFORMATION
  Report Type: Spontaneous
  Country: US (occurrence: US)
  Receive Date: 20251016
  Receipt Date: 20251016
  Transmission Date: 20260118
  Serious: No
  Sender: FRESENIUS KABI
  Company Number: US-FreseniusKabi-FK202514010

PATIENT
  Sex: Female

DRUGS (1)
  1. TYENNE [Suspect]
     Active Substance: TOCILIZUMAB-AAZG
     Indication: Product used for unknown indication
     Dosage: INJECTION; AUTOINJECTOR PEN

REACTIONS (4)
  - Accidental exposure to product [Unknown]
  - Injection site erythema [Unknown]
  - Injection site pain [Unknown]
  - Injection site mass [Unknown]
